FAERS Safety Report 13619340 (Version 1)
Quarter: 2017Q2

REPORT INFORMATION
  Report Type: Spontaneous
  Country: US (occurrence: US)
  Receive Date: 20170606
  Receipt Date: 20170606
  Transmission Date: 20170830
  Serious: No
  Sender: FDA-Public Use
  Company Number: None

PATIENT
  Age: 87 Year
  Sex: Male
  Weight: 81 kg

DRUGS (1)
  1. BISOPROLOL/HCTZ [Suspect]
     Active Substance: BISOPROLOL FUMARATE\HYDROCHLOROTHIAZIDE
     Route: 048
     Dates: start: 20170411, end: 20170605

REACTIONS (3)
  - Swelling [None]
  - Diarrhoea [None]
  - Gastrointestinal motility disorder [None]

NARRATIVE: CASE EVENT DATE: 20170411
